FAERS Safety Report 8615681-6 (Version None)
Quarter: 2012Q3

REPORT INFORMATION
  Report Type: 
  Country: None (occurrence: None)
  Receive Date: 20120823
  Receipt Date: 20120817
  Transmission Date: 20120928
  Serious: Yes (Other)
  Sender: FDA-Public Use
  Company Number: US-JNJFOC-20120808897

PATIENT
  Age: 65 Year
  Sex: Female

DRUGS (5)
  1. AMBIEN [Concomitant]
     Route: 065
  2. NUCYNTA ER [Suspect]
     Indication: PROCEDURAL PAIN
     Route: 048
  3. ATENOLOL [Concomitant]
     Route: 065
  4. DURAGESIC-100 [Concomitant]
     Route: 062
  5. XANAX [Concomitant]
     Route: 065

REACTIONS (1)
  - SEROTONIN SYNDROME [None]
